FAERS Safety Report 7045990-6 (Version None)
Quarter: 2010Q4

REPORT INFORMATION
  Report Type: 
  Country: None (occurrence: None)
  Receive Date: 20101014
  Receipt Date: 20101006
  Transmission Date: 20110411
  Serious: Yes (Other)
  Sender: FDA-Public Use
  Company Number: DE-PFIZER INC-2010098935

PATIENT
  Age: 75 Year
  Sex: Female

DRUGS (5)
  1. SORTIS [Suspect]
     Dosage: 20 MG, 1X/DAY
     Dates: start: 20070101
  2. LOSARTAN POTASSIUM AND HYDROCHLOROTHIAZIDE [Concomitant]
     Dosage: UNK, ONCE DAILY
  3. CARVEDILOL [Concomitant]
     Dosage: 12.5 MG DAILY (HALF OF 25 MG)
  4. EZETROL [Concomitant]
     Dosage: 10 MG, 1X/DAY
  5. ACETYLSALICYLIC ACID [Concomitant]
     Dosage: 100 MG, 1X/DAY

REACTIONS (12)
  - ABDOMINAL DISTENSION [None]
  - CHEST DISCOMFORT [None]
  - CLAUSTROPHOBIA [None]
  - DYSPNOEA [None]
  - FALL [None]
  - HAEMOGLOBIN DECREASED [None]
  - INTERVERTEBRAL DISC DEGENERATION [None]
  - IRRITABILITY [None]
  - MALAISE [None]
  - MUSCULOSKELETAL STIFFNESS [None]
  - PERFORMANCE STATUS DECREASED [None]
  - POOR QUALITY SLEEP [None]
